FAERS Safety Report 19698258 (Version 7)
Quarter: 2021Q3

REPORT INFORMATION
  Report Type: Spontaneous
  Country: FI (occurrence: FI)
  Receive Date: 20210813
  Receipt Date: 20210917
  Transmission Date: 20211014
  Serious: Yes (Death, Other)
  Sender: FDA-Public Use
  Company Number: FI-MYLANLABS-2021M1049456

PATIENT
  Age: 14 Year
  Sex: Female

DRUGS (24)
  1. AMPHOTERICIN B. [Suspect]
     Active Substance: AMPHOTERICIN B
     Indication: ANTIFUNGAL PROPHYLAXIS
     Dosage: UNK
     Route: 065
  2. GANCICLOVIR. [Suspect]
     Active Substance: GANCICLOVIR
     Indication: OPHTHALMIC HERPES ZOSTER
     Dosage: UNK
     Route: 065
  3. ACYCLOVIR                          /00587301/ [Suspect]
     Active Substance: ACYCLOVIR
     Indication: OPHTHALMIC HERPES ZOSTER
     Dosage: UNK
     Route: 065
  4. CLINDAMYCIN. [Suspect]
     Active Substance: CLINDAMYCIN
     Indication: PYREXIA
  5. NOREPINEPHRINE. [Concomitant]
     Active Substance: NOREPINEPHRINE
     Indication: HYPOTENSION
     Dosage: UNK
     Route: 065
  6. MYCOPHENOLATE MOFETIL. [Concomitant]
     Active Substance: MYCOPHENOLATE MOFETIL
     Indication: PROPHYLAXIS AGAINST GRAFT VERSUS HOST DISEASE
     Dosage: UNK (SHORT COURSE)
     Route: 065
  7. VORICONAZOLE. [Suspect]
     Active Substance: VORICONAZOLE
     Indication: ANTIFUNGAL PROPHYLAXIS
  8. CLINDAMYCIN. [Suspect]
     Active Substance: CLINDAMYCIN
     Indication: C-REACTIVE PROTEIN INCREASED
     Dosage: UNK
     Route: 065
  9. VORICONAZOLE. [Suspect]
     Active Substance: VORICONAZOLE
     Indication: MUCORMYCOSIS
     Dosage: 14 MG/KG/DAY I.V. WAS ADDED ON DAY 17
     Route: 042
  10. FLUCONAZOLE. [Suspect]
     Active Substance: FLUCONAZOLE
     Indication: MUCORMYCOSIS
     Dosage: UNK
     Route: 065
  11. DOBUTAMINE [Concomitant]
     Active Substance: DOBUTAMINE HYDROCHLORIDE
     Indication: HYPOTENSION
     Dosage: UNK
     Route: 065
  12. CASPOFUNGIN [Suspect]
     Active Substance: CASPOFUNGIN
     Indication: ANTIFUNGAL PROPHYLAXIS
     Dosage: 50 MG/M2/DAY IV FROM DAY 4 TO DAY 17
     Route: 041
  13. VANCOMYCIN [Suspect]
     Active Substance: VANCOMYCIN
     Indication: OPHTHALMIC HERPES ZOSTER
     Dosage: UNK
     Route: 065
  14. ETOPOSIDE. [Concomitant]
     Active Substance: ETOPOSIDE
     Indication: BONE MARROW CONDITIONING REGIMEN
     Dosage: UNK
  15. MEROPENEM. [Suspect]
     Active Substance: MEROPENEM
     Indication: PYREXIA
     Dosage: UNK
     Route: 065
  16. CYCLOPHOSPHAMIDE. [Concomitant]
     Active Substance: CYCLOPHOSPHAMIDE
     Indication: BONE MARROW CONDITIONING REGIMEN
     Dosage: UNK
     Route: 065
  17. AMPHOTERICIN B. [Suspect]
     Active Substance: AMPHOTERICIN B
     Indication: MUCORMYCOSIS
     Dosage: 5 MG/KG/DAY I.V. ON DAY 18
     Route: 042
  18. FLUCONAZOLE. [Suspect]
     Active Substance: FLUCONAZOLE
     Indication: ANTIFUNGAL PROPHYLAXIS
  19. TEICOPLANIN [Suspect]
     Active Substance: TEICOPLANIN
     Indication: OPHTHALMIC HERPES ZOSTER
     Dosage: UNK
     Route: 065
  20. MEROPENEM. [Suspect]
     Active Substance: MEROPENEM
     Indication: C-REACTIVE PROTEIN INCREASED
  21. CEFTAZIDIME. [Suspect]
     Active Substance: CEFTAZIDIME
     Indication: OPHTHALMIC HERPES ZOSTER
     Dosage: UNK
     Route: 065
  22. NETILMYCIN PROTECH [Suspect]
     Active Substance: NETILMICIN SULFATE
     Indication: OPHTHALMIC HERPES ZOSTER
     Dosage: UNK
     Route: 065
  23. AZTREONAM. [Suspect]
     Active Substance: AZTREONAM
     Indication: PRODUCT USED FOR UNKNOWN INDICATION
     Dosage: UNK
     Route: 065
  24. METHOTREXATE (METHOTREXATE SODIUM) [Concomitant]
     Active Substance: METHOTREXATE SODIUM
     Indication: PROPHYLAXIS AGAINST GRAFT VERSUS HOST DISEASE
     Dosage: UNK (SHORT COURSE)
     Route: 065

REACTIONS (14)
  - Mucormycosis [Fatal]
  - Off label use [Fatal]
  - Renal impairment [Recovering/Resolving]
  - Drug ineffective [Fatal]
  - Skin disorder [Unknown]
  - Fungal sepsis [Fatal]
  - Neutropenia [Not Recovered/Not Resolved]
  - Shock [Fatal]
  - C-reactive protein increased [Unknown]
  - Disseminated mucormycosis [Fatal]
  - Pyrexia [Unknown]
  - Drug ineffective for unapproved indication [Fatal]
  - Skin exfoliation [Unknown]
  - Product use in unapproved indication [Recovered/Resolved]
